FAERS Safety Report 23470561 (Version 1)
Quarter: 2024Q1

REPORT INFORMATION
  Report Type: Spontaneous
  Country: US (occurrence: None)
  Receive Date: 20240201
  Receipt Date: 20240201
  Transmission Date: 20240410
  Serious: No
  Sender: FDA-Public Use
  Company Number: None

PATIENT
  Age: 39 Year
  Sex: Female

DRUGS (1)
  1. ENDOMETRIN [Suspect]
     Active Substance: PROGESTERONE

REACTIONS (3)
  - Skin reaction [None]
  - Physical product label issue [None]
  - Product communication issue [None]

NARRATIVE: CASE EVENT DATE: 20240129
